FAERS Safety Report 16963608 (Version 2)
Quarter: 2019Q4

REPORT INFORMATION
  Report Type: Report from Study
  Country: US (occurrence: US)
  Receive Date: 20191025
  Receipt Date: 20191114
  Transmission Date: 20200122
  Serious: Yes (Hospitalization)
  Sender: FDA-Public Use
  Company Number: US-ACTELION-A-US2019-197467

PATIENT
  Age: 70 Year
  Sex: Male

DRUGS (3)
  1. OPSUMIT [Suspect]
     Active Substance: MACITENTAN
     Indication: PRODUCT USED FOR UNKNOWN INDICATION
     Dosage: 10 MG, QD
     Route: 048
     Dates: start: 20190916
  2. LASIX [Concomitant]
     Active Substance: FUROSEMIDE
  3. BUMEX [Concomitant]
     Active Substance: BUMETANIDE

REACTIONS (3)
  - Renal disorder [Recovered/Resolved]
  - Lung disorder [Recovered/Resolved]
  - Weight increased [Unknown]

NARRATIVE: CASE EVENT DATE: 201910
